FAERS Safety Report 15552731 (Version 1)
Quarter: 2018Q4

REPORT INFORMATION
  Report Type: Spontaneous
  Country: AU (occurrence: AU)
  Receive Date: 20181025
  Receipt Date: 20181025
  Transmission Date: 20190205
  Serious: Yes (Death)
  Sender: FDA-Public Use
  Company Number: AU-NAPPMUNDI-GBR-2018-0053486

PATIENT
  Age: 53 Year
  Sex: Male

DRUGS (6)
  1. OXYCONTIN [Suspect]
     Active Substance: OXYCODONE HYDROCHLORIDE
     Indication: PAIN IN EXTREMITY
     Dosage: 30 MG, PRN
     Route: 048
     Dates: start: 20150322, end: 20150323
  2. OXYCODONE HYDROCHLORIDE. [Suspect]
     Active Substance: OXYCODONE HYDROCHLORIDE
     Indication: NEURALGIA
  3. OXYCODONE HYDROCHLORIDE. [Suspect]
     Active Substance: OXYCODONE HYDROCHLORIDE
     Indication: PAIN IN EXTREMITY
     Dosage: 10-20 MG, QID PRN
     Route: 048
     Dates: start: 201503, end: 20150323
  4. FENTANYL. [Suspect]
     Active Substance: FENTANYL
     Indication: PAIN IN EXTREMITY
     Dosage: 75-150 MCG, Q2H
     Route: 065
     Dates: start: 201503, end: 201503
  5. OXYCONTIN [Suspect]
     Active Substance: OXYCODONE HYDROCHLORIDE
     Indication: NEURALGIA
  6. FENTANYL. [Suspect]
     Active Substance: FENTANYL
     Indication: NEURALGIA

REACTIONS (6)
  - Dyspnoea [Fatal]
  - Product prescribing issue [Unknown]
  - Accidental overdose [Fatal]
  - Toxicity to various agents [Fatal]
  - Nausea [Fatal]
  - Somnolence [Fatal]

NARRATIVE: CASE EVENT DATE: 201503
